FAERS Safety Report 8843524 (Version 2)
Quarter: 2012Q4

REPORT INFORMATION
  Report Type: 
  Country: DK (occurrence: FR)
  Receive Date: 20121016
  Receipt Date: 20121109
  Transmission Date: 20130627
  Serious: Yes (Other)
  Sender: FDA-Public Use
  Company Number: FR-FRI-1000026589

PATIENT
  Age: 66 Year
  Sex: Male

DRUGS (7)
  1. ESCITALOPRAM [Suspect]
     Indication: DEPRESSION
     Dosage: 10 mg
     Route: 048
     Dates: start: 20110902, end: 20120214
  2. LEXOMIL [Concomitant]
     Indication: ANXIETY
     Dates: start: 20120317
  3. PLAVIX [Concomitant]
     Dosage: 1 DF
     Route: 048
  4. PRAVASTATIN [Concomitant]
     Dosage: 1DF
     Route: 048
  5. TRIATEC [Concomitant]
     Dosage: 1 DF
     Route: 048
  6. AMLOR [Concomitant]
     Dosage: 1 DF
     Route: 048
  7. INIPOMP [Concomitant]
     Dosage: 1 DF
     Route: 048

REACTIONS (2)
  - Lymphoedema [Recovering/Resolving]
  - Muscle haemorrhage [Recovering/Resolving]
